FAERS Safety Report 23274090 (Version 2)
Quarter: 2023Q4

REPORT INFORMATION
  Report Type: Report from Study
  Country: US (occurrence: US)
  Receive Date: 20231208
  Receipt Date: 20231223
  Transmission Date: 20240110
  Serious: Yes (Death)
  Sender: FDA-Public Use
  Company Number: US-ABBVIE-5529526

PATIENT
  Sex: Male

DRUGS (1)
  1. VENCLEXTA [Suspect]
     Active Substance: VENETOCLAX
     Indication: Acute leukaemia
     Dosage: TAKE ONE TABLET BY MOUTH DAILY
     Route: 048

REACTIONS (1)
  - Death [Fatal]
